FAERS Safety Report 21881794 (Version 1)
Quarter: 2023Q1

REPORT INFORMATION
  Report Type: Spontaneous
  Country: US (occurrence: US)
  Receive Date: 20230119
  Receipt Date: 20230119
  Transmission Date: 20230418
  Serious: Yes (Hospitalization)
  Sender: FDA-Public Use
  Company Number: US-JNJFOC-20230124080

PATIENT
  Age: 55 Year
  Sex: Male

DRUGS (3)
  1. PSEUDOEPHEDRINE HYDROCHLORIDE [Suspect]
     Active Substance: PSEUDOEPHEDRINE HYDROCHLORIDE
     Indication: Nasal congestion
     Route: 065
  2. FLUVOXAMINE [Concomitant]
     Active Substance: FLUVOXAMINE
     Indication: Anxiety
     Dosage: DAILY
     Route: 065
  3. AMOXICILLIN\CLAVULANATE POTASSIUM [Concomitant]
     Active Substance: AMOXICILLIN\CLAVULANATE POTASSIUM
     Indication: Tooth infection
     Route: 065

REACTIONS (6)
  - Transient global amnesia [Recovered/Resolved]
  - Anterograde amnesia [Recovered/Resolved]
  - Disorientation [Unknown]
  - Hypertension [Unknown]
  - Retrograde amnesia [Recovered/Resolved]
  - Thunderclap headache [Recovered/Resolved]
